FAERS Safety Report 8450217-4 (Version None)
Quarter: 2012Q2

REPORT INFORMATION
  Report Type: 
  Country: None (occurrence: None)
  Receive Date: 20120614
  Receipt Date: 20120614
  Transmission Date: 20120825
  Serious: Yes (Other)
  Sender: FDA-Public Use
  Company Number: None

PATIENT
  Sex: Female
  Weight: 61.6892 kg

DRUGS (1)
  1. PACLITAXEL [Suspect]
     Indication: BREAST CANCER
     Dosage: 144MG WEEKLY IV DRIP
     Route: 041
     Dates: start: 20120604, end: 20120612

REACTIONS (3)
  - NAUSEA [None]
  - FLUSHING [None]
  - DYSPNOEA [None]
